FAERS Safety Report 10601446 (Version 6)
Quarter: 2015Q2

REPORT INFORMATION
  Report Type: Spontaneous
  Country: US (occurrence: US)
  Receive Date: 20141124
  Receipt Date: 20150428
  Transmission Date: 20150821
  Serious: No
  Sender: FDA-Public Use
  Company Number: US-PFIZER INC-2014321591

PATIENT
  Age: 59 Year
  Sex: Female

DRUGS (1)
  1. XELJANZ [Suspect]
     Active Substance: TOFACITINIB CITRATE
     Indication: RHEUMATOID ARTHRITIS
     Dosage: 5 MG, 2X/DAY
     Route: 048
     Dates: start: 20141021, end: 20150408

REACTIONS (6)
  - Abdominal pain upper [Unknown]
  - Headache [Unknown]
  - Abdominal discomfort [Unknown]
  - Skin odour abnormal [Unknown]
  - Swelling face [Unknown]
  - Oral pain [Unknown]

NARRATIVE: CASE EVENT DATE: 20141215
